FAERS Safety Report 4415459-3 (Version None)
Quarter: 2004Q2

REPORT INFORMATION
  Report Type: 
  Country: None (occurrence: None)
  Receive Date: 20040621
  Receipt Date: 20031215
  Transmission Date: 20050107
  Serious: Yes (Death)
  Sender: FDA-Public Use
  Company Number: USA-2003-0012094

PATIENT
  Age: 58 Year
  Sex: Female
  Weight: 112 kg

DRUGS (14)
  1. OXYCODONE HCL [Suspect]
  2. HYDROCODONE BITARTRATE (SIMILAR TO IND 59175) (HYDROCODONE BITARTRATE) [Suspect]
  3. MORPHINE SULFATE [Suspect]
  4. HYDROMORPHONE HYDROCHLORIDE [Suspect]
  5. ACETAMINOPHEN [Suspect]
  6. ALPRAZOLAM [Suspect]
  7. DIPHENHYDRAMINE HCL [Suspect]
  8. PROMETHAZINE [Suspect]
  9. SERTRALINE HYDROCHLORIDE [Suspect]
  10. DILTIAZEM [Suspect]
  11. CODEINE (CODEINE) [Suspect]
  12. BUTALBITAL [Suspect]
  13. CAFFEINE (CAFFEINE) [Suspect]
  14. OXYMETAZOLINE (OXYMETAZOLINE) [Suspect]

REACTIONS (1)
  - MULTIPLE DRUG OVERDOSE [None]
